FAERS Safety Report 8845077 (Version 1)
Quarter: 2012Q4

REPORT INFORMATION
  Report Type: 
  Country: JP (occurrence: JP)
  Receive Date: 20121017
  Receipt Date: 20121017
  Transmission Date: 20130627
  Serious: Yes (Hospitalization)
  Sender: FDA-Public Use
  Company Number: JP-BRISTOL-MYERS SQUIBB COMPANY-16979007

PATIENT
  Age: 60 Year
  Sex: Female

DRUGS (2)
  1. PARAPLATIN [Suspect]
     Indication: CERVIX CARCINOMA
     Route: 042
     Dates: start: 20120906, end: 2012
  2. PACLITAXEL [Suspect]
     Indication: CERVIX CARCINOMA
     Route: 042
     Dates: start: 20120906

REACTIONS (2)
  - Drug eruption [Recovered/Resolved]
  - Pyrexia [Unknown]
